FAERS Safety Report 4971575-9 (Version None)
Quarter: 2006Q2

REPORT INFORMATION
  Report Type: 
  Country: None (occurrence: None)
  Receive Date: 20060413
  Receipt Date: 20060405
  Transmission Date: 20061013
  Serious: Yes (Other)
  Sender: FDA-Public Use
  Company Number: FR-JNJFOC-20060401798

PATIENT
  Age: 76 Year
  Sex: Male

DRUGS (2)
  1. REMINYL [Suspect]
     Indication: DRUG USE FOR UNKNOWN INDICATION
     Route: 048
  2. ZOCOR [Concomitant]
     Indication: HYPERCHOLESTEROLAEMIA

REACTIONS (1)
  - ARTERIAL THROMBOSIS LIMB [None]
